FAERS Safety Report 22345129 (Version 1)
Quarter: 2023Q2

REPORT INFORMATION
  Report Type: Spontaneous
  Country: CA (occurrence: CA)
  Receive Date: 20230519
  Receipt Date: 20230519
  Transmission Date: 20230722
  Serious: Yes (Life-Threatening, Hospitalization)
  Sender: FDA-Public Use
  Company Number: CA-NAPPMUNDI-GBR-2023-0107811

PATIENT
  Age: 3 Decade
  Sex: Male

DRUGS (26)
  1. DILAUDID [Suspect]
     Active Substance: HYDROMORPHONE HYDROCHLORIDE
     Indication: Neuralgia
     Dosage: 7 MILLIGRAM, DAILY
     Route: 042
  2. DILAUDID [Suspect]
     Active Substance: HYDROMORPHONE HYDROCHLORIDE
     Dosage: 30 MILLIGRAM, DAILY
     Route: 042
  3. DILAUDID [Suspect]
     Active Substance: HYDROMORPHONE HYDROCHLORIDE
     Dosage: 1 MILLIGRAM, DAILY
     Route: 042
  4. GABAPENTIN [Concomitant]
     Active Substance: GABAPENTIN
     Indication: Neuralgia
     Dosage: 300 MILLIGRAM, DAILY
     Route: 065
  5. GABAPENTIN [Concomitant]
     Active Substance: GABAPENTIN
     Dosage: 900 MILLIGRAM, DAILY
     Route: 065
  6. GABAPENTIN [Concomitant]
     Active Substance: GABAPENTIN
     Dosage: 3600 MILLIGRAM, DAILY
     Route: 065
  7. GABAPENTIN [Concomitant]
     Active Substance: GABAPENTIN
     Dosage: 1800 MILLIGRAM, DAILY
     Route: 048
  8. GABAPENTIN [Concomitant]
     Active Substance: GABAPENTIN
     Dosage: 1200 MILLIGRAM, DAILY
     Route: 048
  9. IBUPROFEN [Concomitant]
     Active Substance: IBUPROFEN
     Indication: Neuralgia
     Dosage: 1600 MILLIGRAM, DAILY
     Route: 065
  10. VENLAFAXINE [Concomitant]
     Active Substance: VENLAFAXINE HYDROCHLORIDE
     Indication: Neuralgia
     Dosage: 75 MILLIGRAM
     Route: 065
  11. ZOPICLONE [Concomitant]
     Active Substance: ZOPICLONE
     Indication: Neuralgia
     Dosage: 7.5 MILLIGRAM
     Route: 065
  12. KETAMINE [Concomitant]
     Active Substance: KETAMINE
     Indication: Neuralgia
     Dosage: 40 MILLIGRAM, DAILY
     Route: 065
  13. KETAMINE [Concomitant]
     Active Substance: KETAMINE
     Dosage: 30 MILLIGRAM, DAILY
     Route: 065
  14. OLANZAPINE [Concomitant]
     Active Substance: OLANZAPINE
     Indication: Neuralgia
     Dosage: 3 MILLIGRAM, DAILY
     Route: 065
  15. OLANZAPINE [Concomitant]
     Active Substance: OLANZAPINE
     Dosage: 2.5 MILLIGRAM, DAILY
     Route: 065
  16. NABILONE [Concomitant]
     Active Substance: NABILONE
     Indication: Neuralgia
     Dosage: 2 MILLIGRAM, DAILY
     Route: 065
  17. NABILONE [Concomitant]
     Active Substance: NABILONE
     Dosage: 6 MILLIGRAM, DAILY
     Route: 065
  18. FENTANYL [Concomitant]
     Active Substance: FENTANYL
     Indication: Neuralgia
     Dosage: 25 MICROGRAM PER HOUR
     Route: 062
  19. FENTANYL [Concomitant]
     Active Substance: FENTANYL
     Dosage: 37.5 MICROGRAM PER HOUR
     Route: 062
  20. FENTANYL [Concomitant]
     Active Substance: FENTANYL
     Dosage: 12.5 MICROGRAM PER HOUR
     Route: 062
  21. LIDOCAINE [Concomitant]
     Active Substance: LIDOCAINE
     Indication: Neuralgia
     Dosage: 3.84 MILLIGRAM PER HOUR, DAILY
     Route: 065
  22. ACETAMINOPHEN [Concomitant]
     Active Substance: ACETAMINOPHEN
     Indication: Neuralgia
     Dosage: 2600 MILLIGRAM, DAILY
     Route: 065
  23. ACETAMINOPHEN [Concomitant]
     Active Substance: ACETAMINOPHEN
     Dosage: 3900 MILLIGRAM, DAILY
     Route: 065
  24. DICLOFENAC [Concomitant]
     Active Substance: DICLOFENAC
     Indication: Neuralgia
     Dosage: 2.32 PERCENT
     Route: 065
  25. PHENYTOIN [Concomitant]
     Active Substance: PHENYTOIN
     Indication: Neuralgia
     Dosage: 1500 MILLIGRAM, DAILY
     Route: 065
  26. NORTRIPTYLINE [Concomitant]
     Active Substance: NORTRIPTYLINE
     Indication: Neuralgia
     Dosage: UNK
     Route: 065

REACTIONS (1)
  - Drug ineffective [Unknown]
